FAERS Safety Report 6754323-1 (Version None)
Quarter: 2010Q2

REPORT INFORMATION
  Report Type: 
  Country: None (occurrence: None)
  Receive Date: 20100601
  Receipt Date: 20080930
  Transmission Date: 20101027
  Serious: Yes (Hospitalization)
  Sender: FDA-Public Use
  Company Number: 7005867

PATIENT
  Sex: Male

DRUGS (1)
  1. REBIF [Suspect]
     Dates: end: 20080101

REACTIONS (1)
  - INFECTION [None]
